FAERS Safety Report 7199701-4 (Version None)
Quarter: 2010Q4

REPORT INFORMATION
  Report Type: 
  Country: None (occurrence: None)
  Receive Date: 20101228
  Receipt Date: 20101220
  Transmission Date: 20110411
  Serious: Yes (Other)
  Sender: FDA-Public Use
  Company Number: SE-JNJFOC-20101207951

PATIENT
  Sex: Female

DRUGS (6)
  1. DAKTACORT [Suspect]
     Indication: TINEA VERSICOLOUR
     Route: 061
  2. DAKTACORT [Suspect]
     Indication: SKIN CANDIDA
     Route: 061
  3. DAKTACORT [Suspect]
     Indication: TINEA INFECTION
     Route: 061
  4. ACETYLCYSTEINE [Concomitant]
     Route: 048
  5. SPIRONOLACTONE [Concomitant]
     Route: 048
  6. TROMBYL [Concomitant]
     Route: 048

REACTIONS (1)
  - HERPES ZOSTER [None]
